FAERS Safety Report 17154436 (Version 1)
Quarter: 2019Q4

REPORT INFORMATION
  Report Type: Spontaneous
  Country: NL (occurrence: NL)
  Receive Date: 20191213
  Receipt Date: 20191213
  Transmission Date: 20200122
  Serious: Yes (Death, Other)
  Sender: FDA-Public Use
  Company Number: NL-BAXTER-2019BAX025518

PATIENT
  Sex: Male

DRUGS (18)
  1. ETOPOSIDE. [Suspect]
     Active Substance: ETOPOSIDE
     Indication: NON-HODGKIN^S LYMPHOMA
     Dosage: ADDITIONAL INFO: PART OF DHAP/VIM/DHAP
     Route: 065
  2. IFOSFAMIDE. [Suspect]
     Active Substance: IFOSFAMIDE
     Indication: NON-HODGKIN^S LYMPHOMA
     Dosage: PART OF DHAP/VIM/DHAP
     Route: 065
  3. CYTARABINE. [Suspect]
     Active Substance: CYTARABINE
     Indication: NON-HODGKIN^S LYMPHOMA
  4. CISPLATIN. [Suspect]
     Active Substance: CISPLATIN
     Indication: NON-HODGKIN^S LYMPHOMA
     Dosage: PART OF DHAP/VIM/DHAP
     Route: 065
  5. METHOTREXATE. [Suspect]
     Active Substance: METHOTREXATE
     Indication: NON-HODGKIN^S LYMPHOMA
     Dosage: PART OF DHAP/VIM/DHAP
     Route: 065
  6. RITUXIMAB. [Suspect]
     Active Substance: RITUXIMAB
     Indication: NON-HODGKIN^S LYMPHOMA RECURRENT
     Dosage: PART OF R-LPP (6X)
     Route: 065
  7. DOXIL [Suspect]
     Active Substance: DOXORUBICIN HYDROCHLORIDE
     Indication: NON-HODGKIN^S LYMPHOMA
     Dosage: PART OF CHOP (6X)
     Route: 065
  8. CYTARABINE. [Suspect]
     Active Substance: CYTARABINE
     Indication: BONE MARROW CONDITIONING REGIMEN
     Dosage: PART OF DHAP/VIM/DHAP
     Route: 065
  9. CARMUSTINE. [Suspect]
     Active Substance: CARMUSTINE
     Indication: BONE MARROW CONDITIONING REGIMEN
     Dosage: PART OF BEAM
     Route: 065
  10. PREDNISONE. [Suspect]
     Active Substance: PREDNISONE
     Indication: NON-HODGKIN^S LYMPHOMA
     Route: 065
  11. DEXAMETHASONE. [Suspect]
     Active Substance: DEXAMETHASONE
     Indication: NON-HODGKIN^S LYMPHOMA
     Route: 065
  12. PROCARBAZINE [Suspect]
     Active Substance: PROCARBAZINE
     Indication: NON-HODGKIN^S LYMPHOMA RECURRENT
     Dosage: PART OF R-LPP (6X)
     Route: 065
  13. CHLORAMBUCIL [Suspect]
     Active Substance: CHLORAMBUCIL
     Indication: NON-HODGKIN^S LYMPHOMA RECURRENT
  14. CHLORAMBUCIL [Suspect]
     Active Substance: CHLORAMBUCIL
     Indication: NON-HODGKIN^S LYMPHOMA
     Dosage: 3X
     Route: 065
  15. PREDNISONE. [Suspect]
     Active Substance: PREDNISONE
     Indication: NON-HODGKIN^S LYMPHOMA RECURRENT
  16. MELPHALAN. [Suspect]
     Active Substance: MELPHALAN
     Indication: BONE MARROW CONDITIONING REGIMEN
     Route: 065
  17. CYCLOPHOSPHAMIDE. [Suspect]
     Active Substance: CYCLOPHOSPHAMIDE
     Indication: NON-HODGKIN^S LYMPHOMA
     Dosage: PART OF CHOP (6X)
     Route: 065
  18. VINCRISTINE [Suspect]
     Active Substance: VINCRISTINE
     Indication: NON-HODGKIN^S LYMPHOMA
     Dosage: PART OF CHOP (6X)
     Route: 065

REACTIONS (4)
  - Myelodysplastic syndrome [Not Recovered/Not Resolved]
  - Blood stem cell transplant failure [Fatal]
  - Non-Hodgkin^s lymphoma recurrent [Unknown]
  - Transformation to acute myeloid leukaemia [Unknown]
